FAERS Safety Report 24586737 (Version 1)
Quarter: 2024Q4

REPORT INFORMATION
  Report Type: Spontaneous
  Country: US (occurrence: None)
  Receive Date: 20241107
  Receipt Date: 20241107
  Transmission Date: 20250114
  Serious: No
  Sender: ENCUBE ETHICALS
  Company Number: US-Encube-001392

PATIENT
  Sex: Female

DRUGS (3)
  1. TAVABOROLE [Suspect]
     Active Substance: TAVABOROLE
     Indication: Onychomycosis
     Dosage: SOLUTION
     Dates: start: 20230512
  2. ELIQUIS [Concomitant]
     Active Substance: APIXABAN
     Indication: Bone disorder
  3. BONIVA [Concomitant]
     Active Substance: IBANDRONATE SODIUM
     Indication: Bone disorder

REACTIONS (3)
  - Application site exfoliation [Unknown]
  - Ingrowing nail [Unknown]
  - Off label use [Unknown]
